FAERS Safety Report 11184364 (Version 4)
Quarter: 2016Q1

REPORT INFORMATION
  Report Type: Report from Study
  Country: CA (occurrence: CA)
  Receive Date: 20150612
  Receipt Date: 20160322
  Transmission Date: 20160525
  Serious: Yes (Hospitalization, Other)
  Sender: FDA-Public Use
  Company Number: CA-JNJFOC-20150600295

PATIENT
  Age: 56 Year
  Sex: Female
  Weight: 82.56 kg

DRUGS (2)
  1. STELARA [Suspect]
     Active Substance: USTEKINUMAB
     Indication: PSORIASIS
     Route: 058
     Dates: start: 20150403
  2. STELARA [Suspect]
     Active Substance: USTEKINUMAB
     Indication: PSORIASIS
     Route: 058
     Dates: end: 20151220

REACTIONS (4)
  - Intracranial aneurysm [Unknown]
  - Fall [Unknown]
  - Cerebrovascular accident [Unknown]
  - Head injury [Unknown]

NARRATIVE: CASE EVENT DATE: 20150527
